FAERS Safety Report 25310339 (Version 4)
Quarter: 2025Q2

REPORT INFORMATION
  Report Type: Report from Study
  Country: US (occurrence: US)
  Receive Date: 20250514
  Receipt Date: 20250521
  Transmission Date: 20250717
  Serious: Yes (Other)
  Sender: SANOFI AVENTIS
  Company Number: US-SA-2025SA133523

PATIENT
  Age: 37 Year
  Sex: Female

DRUGS (8)
  1. TEPLIZUMAB-MZWV [Suspect]
     Active Substance: TEPLIZUMAB-MZWV
     Indication: Diabetes prophylaxis
     Dosage: 123.5 UG, QD
     Route: 042
     Dates: start: 20250505, end: 20250505
  2. TEPLIZUMAB-MZWV [Suspect]
     Active Substance: TEPLIZUMAB-MZWV
     Dosage: 237.5 UG, QD
     Route: 042
     Dates: start: 20250506, end: 20250506
  3. TEPLIZUMAB-MZWV [Suspect]
     Active Substance: TEPLIZUMAB-MZWV
     Dosage: 465 UG, QD
     Route: 042
     Dates: start: 20250507, end: 20250507
  4. TEPLIZUMAB-MZWV [Suspect]
     Active Substance: TEPLIZUMAB-MZWV
     Dosage: 950 UG, QD
     Route: 042
     Dates: start: 20250508, end: 20250508
  5. TEPLIZUMAB-MZWV [Suspect]
     Active Substance: TEPLIZUMAB-MZWV
     Dosage: 1957 UG, QD
     Route: 042
     Dates: start: 20250509, end: 20250510
  6. TEPLIZUMAB-MZWV [Suspect]
     Active Substance: TEPLIZUMAB-MZWV
     Dosage: 1957 UG, QD
     Route: 042
     Dates: start: 20250512, end: 20250516
  7. REGLAN [Concomitant]
     Active Substance: METOCLOPRAMIDE HYDROCHLORIDE
     Indication: Premedication
     Dates: start: 20250506, end: 20250506
  8. IBUPROFEN [Concomitant]
     Active Substance: IBUPROFEN
     Indication: Premedication
     Dates: start: 20250506, end: 20250506

REACTIONS (5)
  - Thrombosis [Recovered/Resolved]
  - Catheter site pain [Recovered/Resolved]
  - Condition aggravated [Recovered/Resolved]
  - Pain in extremity [Recovered/Resolved]
  - White blood cell count increased [Recovering/Resolving]

NARRATIVE: CASE EVENT DATE: 20250505
